FAERS Safety Report 15883756 (Version 1)
Quarter: 2019Q1

REPORT INFORMATION
  Report Type: Report from Study
  Country: IL (occurrence: IL)
  Receive Date: 20190129
  Receipt Date: 20190129
  Transmission Date: 20190417
  Serious: Yes (Other)
  Sender: FDA-Public Use
  Company Number: PHHY2019IL016690

PATIENT
  Sex: Female

DRUGS (4)
  1. SIGNIFOR LAR [Suspect]
     Active Substance: PASIREOTIDE
     Dosage: UNK
     Route: 030
     Dates: start: 20181030
  2. SIGNIFOR LAR [Suspect]
     Active Substance: PASIREOTIDE
     Dosage: 40 MG, (Q6W)
     Route: 030
     Dates: start: 20180208
  3. SIGNIFOR LAR [Suspect]
     Active Substance: PASIREOTIDE
     Dosage: UNK
     Route: 030
     Dates: start: 20181212
  4. SIGNIFOR LAR [Suspect]
     Active Substance: PASIREOTIDE
     Dosage: 20 MG, UNK
     Route: 030

REACTIONS (1)
  - Diabetes mellitus [Not Recovered/Not Resolved]
